FAERS Safety Report 6065260-2 (Version None)
Quarter: 2009Q1

REPORT INFORMATION
  Report Type: 
  Country: None (occurrence: None)
  Receive Date: 20090204
  Receipt Date: 20090202
  Transmission Date: 20090719
  Serious: Yes (Life-Threatening, Hospitalization, Other)
  Sender: FDA-Public Use
  Company Number: PHEH2008US08231

PATIENT
  Sex: Male
  Weight: 22.8 kg

DRUGS (5)
  1. EXJADE [Suspect]
     Indication: IRON OVERLOAD
     Dosage: ALTERNATIVE DOSE 1000 MG /THREE TIMES WEEK AND 750 MG 4 TIMES WEEK
     Route: 048
     Dates: start: 20030801, end: 20080912
  2. EXJADE [Suspect]
     Dosage: DOSE NOT PROVIDED
     Route: 048
     Dates: start: 20080926, end: 20081006
  3. EXJADE [Suspect]
     Dosage: DOSE NOT PROVIDED
     Route: 048
  4. MEROPENEM [Suspect]
  5. ERYTHROMYCIN [Concomitant]

REACTIONS (54)
  - ALANINE AMINOTRANSFERASE INCREASED [None]
  - ASPARTATE AMINOTRANSFERASE INCREASED [None]
  - ATRIOVENTRICULAR BLOCK SECOND DEGREE [None]
  - BASILAR ARTERY STENOSIS [None]
  - BLOOD CULTURE POSITIVE [None]
  - BLOOD GLUCOSE INCREASED [None]
  - BLOOD OSMOLARITY INCREASED [None]
  - BLOOD SODIUM DECREASED [None]
  - BLOOD UREA INCREASED [None]
  - BRAIN OEDEMA [None]
  - CARBON DIOXIDE ABNORMAL [None]
  - CARDIAC MURMUR [None]
  - CARDIOMEGALY [None]
  - CRANIAL NERVE PALSIES MULTIPLE [None]
  - CSF BACTERIA IDENTIFIED [None]
  - CSF GLUCOSE DECREASED [None]
  - CSF NEUTROPHIL COUNT INCREASED [None]
  - CSF PRESSURE INCREASED [None]
  - CSF PROTEIN INCREASED [None]
  - CUSHING'S SYNDROME [None]
  - EOSINOPHILIA [None]
  - ESCHERICHIA SEPSIS [None]
  - EXTENSOR PLANTAR RESPONSE [None]
  - EYE MOVEMENT DISORDER [None]
  - EYELID OEDEMA [None]
  - EYELID PTOSIS [None]
  - FACIAL PALSY [None]
  - FATIGUE [None]
  - HAEMATOCRIT DECREASED [None]
  - HAEMOGLOBIN DECREASED [None]
  - HEART SOUNDS ABNORMAL [None]
  - HEPATOMEGALY [None]
  - HYPOTENSION [None]
  - LEFT VENTRICULAR HYPERTROPHY [None]
  - LUMBAR PUNCTURE ABNORMAL [None]
  - MENINGISM [None]
  - MENINGITIS BACTERIAL [None]
  - MUSCLE ATROPHY [None]
  - NAUSEA [None]
  - NEUROLOGICAL SYMPTOM [None]
  - NEUTROPHIL COUNT INCREASED [None]
  - NUCHAL RIGIDITY [None]
  - OCULAR HYPERAEMIA [None]
  - PERIPHERAL VASCULAR DISORDER [None]
  - PUPIL FIXED [None]
  - PUPILS UNEQUAL [None]
  - PYREXIA [None]
  - REDUCTION OF INCREASED INTRACRANIAL PRESSURE [None]
  - SEPTIC SHOCK [None]
  - TACHYCARDIA [None]
  - TACHYPNOEA [None]
  - VENTRICULAR DRAINAGE [None]
  - VOMITING [None]
  - WHITE BLOOD CELL COUNT INCREASED [None]
